FAERS Safety Report 8833908 (Version 1)
Quarter: 2012Q4

REPORT INFORMATION
  Report Type: Spontaneous
  Country: ES (occurrence: None)
  Receive Date: 20121005
  Receipt Date: 20121005
  Transmission Date: 20130627
  Serious: Yes (Hospitalization, Other)
  Sender: FDA-Public Use
  Company Number: 2012P1059913

PATIENT
  Age: 19 Year
  Sex: Male

DRUGS (4)
  1. ISONIAZID [Suspect]
     Indication: TUBERCULOSIS
  2. RIFAMPICIN (NO PREF. NAME) [Suspect]
     Indication: TUBERCULOSIS
  3. ETHAMBUTOL [Suspect]
     Indication: TUBERCULOSIS
  4. PYRAZINAMIDE [Suspect]
     Indication: TUBERCULOSIS

REACTIONS (8)
  - Simplex virus test positive [None]
  - Simplex virus test positive [None]
  - Cross sensitivity reaction [None]
  - Rash papular [None]
  - Leukocytosis [None]
  - Eosinophilia [None]
  - Hepatic failure [None]
  - Pyrexia [None]
